FAERS Safety Report 5861678-9 (Version None)
Quarter: 2008Q3

REPORT INFORMATION
  Report Type: 
  Country: None (occurrence: None)
  Receive Date: 20080827
  Receipt Date: 20080613
  Transmission Date: 20090109
  Serious: No
  Sender: FDA-Public Use
  Company Number: US-ABBOTT-08P-163-0457880-00

PATIENT
  Sex: Male

DRUGS (1)
  1. NIASPAN [Suspect]
     Indication: BLOOD CHOLESTEROL INCREASED
     Dates: start: 20080607

REACTIONS (2)
  - BURNING SENSATION [None]
  - SENSORY DISTURBANCE [None]
